FAERS Safety Report 13603973 (Version 1)
Quarter: 2017Q2

REPORT INFORMATION
  Report Type: Spontaneous
  Country: US (occurrence: US)
  Receive Date: 20170601
  Receipt Date: 20170601
  Transmission Date: 20170830
  Serious: Yes (Hospitalization)
  Sender: FDA-Public Use
  Company Number: None

PATIENT
  Age: 49 Year
  Sex: Female
  Weight: 81.45 kg

DRUGS (1)
  1. LEVAQUIN [Suspect]
     Active Substance: LEVOFLOXACIN
     Dates: start: 20080522, end: 20080530

REACTIONS (6)
  - Feeling abnormal [None]
  - Insomnia [None]
  - Tendonitis [None]
  - Epicondylitis [None]
  - Neuropathy peripheral [None]
  - Arthralgia [None]

NARRATIVE: CASE EVENT DATE: 20080530
